FAERS Safety Report 8124615-2 (Version None)
Quarter: 2012Q1

REPORT INFORMATION
  Report Type: 
  Country: None (occurrence: None)
  Receive Date: 20120209
  Receipt Date: 20120126
  Transmission Date: 20120608
  Serious: Yes (Other)
  Sender: FDA-Public Use
  Company Number: BD-ASTELLAS-2012US001514

PATIENT
  Age: 43 Year
  Sex: Male
  Weight: 49 kg

DRUGS (1)
  1. AMBISOME [Suspect]
     Indication: VISCERAL LEISHMANIASIS
     Dosage: 245 MG, UNKNOWN/D
     Route: 065
     Dates: start: 20100530

REACTIONS (1)
  - RHABDOMYOLYSIS [None]
